FAERS Safety Report 20550662 (Version 2)
Quarter: 2022Q2

REPORT INFORMATION
  Report Type: Spontaneous
  Country: US (occurrence: None)
  Receive Date: 20220304
  Receipt Date: 20220411
  Transmission Date: 20220721
  Serious: No
  Sender: FDA-Public Use
  Company Number: 2022A058663

PATIENT
  Sex: Male
  Weight: 97.5 kg

DRUGS (1)
  1. SYMBICORT [Suspect]
     Active Substance: BUDESONIDE\FORMOTEROL FUMARATE DIHYDRATE
     Indication: Asthma
     Dosage: 160/4.5 MCG TWO RESPIRATORY INHALATIONS TWICE A DAY
     Route: 055

REACTIONS (7)
  - Weight decreased [Unknown]
  - Body height decreased [Unknown]
  - Wrong technique in device usage process [Unknown]
  - Product use issue [Unknown]
  - Intentional product use issue [Unknown]
  - Device defective [Unknown]
  - Device delivery system issue [Unknown]
